FAERS Safety Report 23998109 (Version 2)
Quarter: 2024Q3

REPORT INFORMATION
  Report Type: Spontaneous
  Country: US (occurrence: US)
  Receive Date: 20240621
  Receipt Date: 20240918
  Transmission Date: 20241017
  Serious: Yes (Other)
  Sender: BRISTOL MYERS SQUIBB
  Company Number: US-BRISTOL-MYERS SQUIBB COMPANY-2024-097652

PATIENT

DRUGS (1)
  1. OPDUALAG [Suspect]
     Active Substance: NIVOLUMAB\RELATLIMAB
     Indication: Product used for unknown indication
     Dosage: ONCE
     Dates: start: 202403

REACTIONS (1)
  - Immune-mediated hepatitis [Unknown]

NARRATIVE: CASE EVENT DATE: 20240101
